FAERS Safety Report 8258279-4 (Version None)
Quarter: 2012Q2

REPORT INFORMATION
  Report Type: 
  Country: None (occurrence: None)
  Receive Date: 20120404
  Receipt Date: 20120327
  Transmission Date: 20120825
  Serious: No
  Sender: FDA-Public Use
  Company Number: US-PFIZER INC-2012082972

PATIENT
  Sex: Male
  Weight: 91 kg

DRUGS (2)
  1. FOLIC ACID [Suspect]
     Indication: HYPOAESTHESIA
     Dosage: 1 MG, UNK
  2. ESOMEPRAZOLE MAGNESIUM [Concomitant]
     Indication: ABDOMINAL DISCOMFORT

REACTIONS (1)
  - DRUG INEFFECTIVE [None]
